FAERS Safety Report 8911032 (Version 2)
Quarter: 2012Q4

REPORT INFORMATION
  Report Type: 
  Country: US (occurrence: US)
  Receive Date: 20121116
  Receipt Date: 20121123
  Transmission Date: 20130627
  Serious: Yes (Congenital Anomaly)
  Sender: FDA-Public Use
  Company Number: US-JNJFOC-20121103614

PATIENT

DRUGS (1)
  1. TOPIRAMATE [Suspect]
     Indication: FOETAL EXPOSURE DURING PREGNANCY
     Route: 064

REACTIONS (14)
  - Pulmonary valve stenosis congenital [Unknown]
  - Cleft lip [Unknown]
  - Atrial septal defect [Unknown]
  - Cleft palate [Unknown]
  - Patent ductus arteriosus [Unknown]
  - Atrial septal defect [Unknown]
  - Coarctation of the aorta [Unknown]
  - Congenital central nervous system anomaly [Unknown]
  - Spina bifida [Unknown]
  - Anal atresia [Unknown]
  - Cryptorchism [Unknown]
  - Premature baby [Unknown]
  - Congenital diaphragmatic hernia [Unknown]
  - Ventricular septal defect [Unknown]
